FAERS Safety Report 25412380 (Version 2)
Quarter: 2025Q4

REPORT INFORMATION
  Report Type: Report from Study
  Country: US (occurrence: US)
  Receive Date: 20250609
  Receipt Date: 20251006
  Transmission Date: 20260118
  Serious: Yes (Hospitalization)
  Sender: TAKEDA
  Company Number: US-TAKEDA-2024TUS001995

PATIENT
  Sex: Female
  Weight: 83 kg

DRUGS (43)
  1. HUMAN IMMUNOGLOBULIN G\HYALURONIDASE RECOMBINANT HUMAN [Suspect]
     Active Substance: HUMAN IMMUNOGLOBULIN G\HYALURONIDASE (HUMAN RECOMBINANT)
     Indication: Immunodeficiency common variable
     Dosage: 40 GRAM, Q4WEEKS
  2. EPINEPHRINE [Concomitant]
     Active Substance: EPINEPHRINE
     Dosage: UNK
  3. ACETAMINOPHEN [Concomitant]
     Active Substance: ACETAMINOPHEN
     Dosage: UNK
  4. SODIUM CHLORIDE [Concomitant]
     Active Substance: SODIUM CHLORIDE
     Dosage: UNK
  5. CRESTOR [Concomitant]
     Active Substance: ROSUVASTATIN CALCIUM
     Dosage: UNK
  6. VITAMIN C [Concomitant]
     Active Substance: ASCORBIC ACID
     Dosage: UNK
  7. LYRICA [Concomitant]
     Active Substance: PREGABALIN
     Dosage: UNK
  8. ZINC SULFATE [Concomitant]
     Active Substance: ZINC SULFATE
     Dosage: UNK
  9. ERGOCALCIFEROL [Concomitant]
     Active Substance: ERGOCALCIFEROL
     Dosage: UNK
  10. ALBUTEROL SULFATE [Concomitant]
     Active Substance: ALBUTEROL SULFATE
     Dosage: UNK
  11. SYNTHROID [Concomitant]
     Active Substance: LEVOTHYROXINE SODIUM
     Dosage: UNK
  12. BIOTIN [Concomitant]
     Active Substance: BIOTIN
     Dosage: UNK
  13. VITAMIN D3 [Concomitant]
     Active Substance: CHOLECALCIFEROL
     Dosage: UNK
  14. QUERCETIN [Concomitant]
     Active Substance: QUERCETIN
     Dosage: UNK
  15. LOSARTAN POTASSIUM [Concomitant]
     Active Substance: LOSARTAN POTASSIUM
     Dosage: UNK
  16. LIDOCAINE [Concomitant]
     Active Substance: LIDOCAINE
     Dosage: UNK
  17. BENTYL [Concomitant]
     Active Substance: DICYCLOMINE HYDROCHLORIDE
     Dosage: UNK
  18. BUDESONIDE [Concomitant]
     Active Substance: BUDESONIDE
     Dosage: UNK
  19. ZETIA [Concomitant]
     Active Substance: EZETIMIBE
     Dosage: UNK
  20. FLUTICASONE PROPIONATE [Concomitant]
     Active Substance: FLUTICASONE PROPIONATE
     Dosage: UNK
  21. ISOSORBIDE MONONITRATE [Concomitant]
     Active Substance: ISOSORBIDE MONONITRATE
     Dosage: UNK
  22. TESSALON [Concomitant]
     Active Substance: BENZONATATE
     Dosage: UNK
  23. OXYGEN [Concomitant]
     Active Substance: OXYGEN
     Dosage: UNK
  24. FOLIC ACID [Concomitant]
     Active Substance: FOLIC ACID
     Dosage: UNK
  25. DIPHENHYDRAMINE HYDROCHLORIDE [Concomitant]
     Active Substance: DIPHENHYDRAMINE HYDROCHLORIDE
     Dosage: UNK
  26. ADVAIR HFA [Concomitant]
     Active Substance: FLUTICASONE PROPIONATE\SALMETEROL XINAFOATE
     Dosage: UNK
  27. REPATHA [Concomitant]
     Active Substance: EVOLOCUMAB
     Dosage: UNK
  28. ANTIVERT [Concomitant]
     Active Substance: MECLIZINE HYDROCHLORIDE
     Dosage: UNK
  29. YUPELRI [Concomitant]
     Active Substance: REVEFENACIN
     Dosage: UNK
  30. PROAIR DIGIHALER [Concomitant]
     Active Substance: ALBUTEROL SULFATE
     Dosage: UNK
  31. PERFOROMIST [Concomitant]
     Active Substance: FORMOTEROL FUMARATE DIHYDRATE
     Dosage: UNK
  32. CYCLOBENZAPRINE HYDROCHLORIDE [Concomitant]
     Active Substance: CYCLOBENZAPRINE HYDROCHLORIDE
     Dosage: UNK
  33. TOPROL XL [Concomitant]
     Active Substance: METOPROLOL SUCCINATE
     Dosage: UNK
  34. ASPIRIN [Concomitant]
     Active Substance: ASPIRIN
     Dosage: UNK
  35. PLAVIX [Concomitant]
     Active Substance: CLOPIDOGREL BISULFATE
     Dosage: UNK
  36. AZITHROMYCIN [Concomitant]
     Active Substance: AZITHROMYCIN
     Dosage: UNK
  37. VITAMIN B [Concomitant]
     Active Substance: VITAMIN B
     Dosage: UNK
  38. LEQVIO [Concomitant]
     Active Substance: INCLISIRAN SODIUM
     Dosage: UNK
  39. NYSTATIN [Concomitant]
     Active Substance: NYSTATIN
     Dosage: UNK
  40. BENZONATATE [Concomitant]
     Active Substance: BENZONATATE
     Dosage: UNK
  41. FUROSEMIDE [Concomitant]
     Active Substance: FUROSEMIDE
     Dosage: UNK
  42. ROSUVASTATIN CALCIUM [Concomitant]
     Active Substance: ROSUVASTATIN CALCIUM
     Dosage: UNK
  43. Senexon [Concomitant]
     Dosage: UNK

REACTIONS (12)
  - Confusional state [Unknown]
  - Oxygen saturation decreased [Unknown]
  - Dizziness [Unknown]
  - Tremor [Unknown]
  - Vocal cord inflammation [Unknown]
  - Fall [Unknown]
  - Lower limb fracture [Unknown]
  - Incorrect dose administered [Unknown]
  - Hypotension [Unknown]
  - Fatigue [Unknown]
  - Pain in extremity [Unknown]
  - Burning sensation [Unknown]
